FAERS Safety Report 24954736 (Version 2)
Quarter: 2025Q1

REPORT INFORMATION
  Report Type: Spontaneous
  Country: IT (occurrence: IT)
  Receive Date: 20250211
  Receipt Date: 20250320
  Transmission Date: 20250409
  Serious: Yes (Death, Hospitalization, Other)
  Sender: TEVA
  Company Number: None

PATIENT
  Age: 68 Year
  Sex: Female

DRUGS (2)
  1. PACLITAXEL [Suspect]
     Active Substance: PACLITAXEL
     Indication: Breast cancer
     Route: 042
     Dates: start: 20240916, end: 20241126
  2. TRASTUZUMAB [Suspect]
     Active Substance: TRASTUZUMAB
     Indication: Breast cancer
     Route: 042
     Dates: start: 20240916, end: 20241126

REACTIONS (5)
  - Dyspnoea [Fatal]
  - Acute respiratory distress syndrome [Fatal]
  - Pyrexia [Fatal]
  - Asthenia [Fatal]
  - Cough [Fatal]

NARRATIVE: CASE EVENT DATE: 20241201
